FAERS Safety Report 5912538-6 (Version None)
Quarter: 2008Q4

REPORT INFORMATION
  Report Type: 
  Country: None (occurrence: None)
  Receive Date: 20081008
  Receipt Date: 20080929
  Transmission Date: 20090506
  Serious: Yes (Death, Other)
  Sender: FDA-Public Use
  Company Number: US-ABBOTT-08P-163-0473370-00

PATIENT
  Sex: Male
  Weight: 72.64 kg

DRUGS (1)
  1. HUMIRA [Suspect]
     Indication: RHEUMATOID ARTHRITIS
     Dates: start: 20040101, end: 20080801

REACTIONS (6)
  - CONVULSION [None]
  - DEPRESSION [None]
  - GUN SHOT WOUND [None]
  - HALLUCINATION [None]
  - HAND FRACTURE [None]
  - PAIN [None]
